FAERS Safety Report 25131244 (Version 1)
Quarter: 2025Q1

REPORT INFORMATION
  Report Type: Spontaneous
  Country: US (occurrence: US)
  Receive Date: 20250327
  Receipt Date: 20250327
  Transmission Date: 20250409
  Serious: No
  Sender: PFIZER
  Company Number: US-PFIZER INC-PV202500036791

PATIENT
  Age: 43 Year
  Sex: Female

DRUGS (10)
  1. EUCRISA [Suspect]
     Active Substance: CRISABOROLE
  2. DEVICE [Concomitant]
     Active Substance: DEVICE
  3. KETOCONAZOLE [Concomitant]
     Active Substance: KETOCONAZOLE
  4. RETIN-A MICRO [Concomitant]
     Active Substance: TRETINOIN
  5. TRIAMCINOLONE ACETONIDE [Concomitant]
     Active Substance: TRIAMCINOLONE ACETONIDE
  6. FAMOTIDINE [Concomitant]
     Active Substance: FAMOTIDINE
  7. HYDROXYZINE HYDROCHLORIDE [Concomitant]
     Active Substance: HYDROXYZINE HYDROCHLORIDE
  8. PREDNISONE [Concomitant]
     Active Substance: PREDNISONE
  9. ZYRTEC [Concomitant]
     Active Substance: CETIRIZINE HYDROCHLORIDE
  10. XOLAIR [Concomitant]
     Active Substance: OMALIZUMAB

REACTIONS (1)
  - Drug ineffective [Unknown]
